FAERS Safety Report 5908646-6 (Version None)
Quarter: 2008Q4

REPORT INFORMATION
  Report Type: 
  Country: None (occurrence: None)
  Receive Date: 20081006
  Receipt Date: 20080925
  Transmission Date: 20090506
  Serious: Yes (Hospitalization, Other)
  Sender: FDA-Public Use
  Company Number: US-ELI_LILLY_AND_COMPANY-US200809000484

PATIENT
  Sex: Female
  Weight: 160.54 kg

DRUGS (8)
  1. HUMATROPE [Suspect]
     Indication: HYPOPITUITARISM
     Dosage: 0.2 MG, WEEKLY (1/W)
     Dates: start: 20070308, end: 20070625
  2. TYLENOL W/ CODEINE [Concomitant]
     Indication: PAIN
     Route: 048
  3. ASPIRIN [Concomitant]
     Indication: CARDIOVASCULAR EVENT PROPHYLAXIS
     Route: 048
     Dates: start: 20050101
  4. CELEXA [Concomitant]
     Indication: OBSESSIVE-COMPULSIVE DISORDER
     Route: 048
     Dates: start: 20040701
  5. DOSTINEX [Concomitant]
     Indication: HYPERPROLACTINAEMIA
     Dates: start: 20020101
  6. HYDROCORTISONE [Concomitant]
     Indication: ADRENAL INSUFFICIENCY
  7. SYNTHROID [Concomitant]
     Indication: HYPOTHYROIDISM
     Route: 048
  8. WELLBUTRIN SR [Concomitant]
     Indication: OBSESSIVE-COMPULSIVE DISORDER
     Route: 048
     Dates: start: 20040701

REACTIONS (6)
  - CEREBROVASCULAR ACCIDENT [None]
  - FALL [None]
  - LYMPHADENOPATHY [None]
  - MUSCULOSKELETAL DISCOMFORT [None]
  - NON-HODGKIN'S LYMPHOMA [None]
  - UMBILICAL HERNIA [None]
